APPROVED DRUG PRODUCT: IBUPROFEN
Active Ingredient: IBUPROFEN
Strength: 600MG
Dosage Form/Route: TABLET;ORAL
Application: A070330 | Product #001
Applicant: STRIDES PHARMA INTERNATIONAL AG
Approved: Aug 6, 1985 | RLD: No | RS: No | Type: DISCN